FAERS Safety Report 5242591-7 (Version None)
Quarter: 2007Q1

REPORT INFORMATION
  Report Type: 
  Country: None (occurrence: None)
  Receive Date: 20070221
  Receipt Date: 20070213
  Transmission Date: 20070707
  Serious: Yes (Other)
  Sender: FDA-Public Use
  Company Number: ITWYE342425JAN07

PATIENT
  Sex: Female

DRUGS (1)
  1. ENBREL [Suspect]
     Indication: PSORIATIC ARTHROPATHY
     Dosage: NOT PROVIDED
     Dates: start: 20060401, end: 20061101

REACTIONS (2)
  - CUTANEOUS SARCOIDOSIS [None]
  - PULMONARY SARCOIDOSIS [None]
